FAERS Safety Report 5123091-1 (Version None)
Quarter: 2006Q4

REPORT INFORMATION
  Report Type: 
  Country: None (occurrence: None)
  Receive Date: 20061009
  Receipt Date: 20060929
  Transmission Date: 20070319
  Serious: Yes (Hospitalization, Other)
  Sender: FDA-Public Use
  Company Number: US-AVENTIS-200618221US

PATIENT
  Sex: Male
  Weight: 70.45 kg

DRUGS (8)
  1. LANTUS [Suspect]
     Indication: DIABETES MELLITUS
     Dates: start: 20031102
  2. LANTUS [Suspect]
     Dosage: DOSE: 4O
  3. LANTUS [Suspect]
     Dosage: DOSE: UNK
     Dates: start: 20060101
  4. LANTUS [Suspect]
  5. HUMALOG                            /01293501/ [Suspect]
     Dosage: DOSE: UNK
     Dates: end: 20040101
  6. NOVOLOG [Suspect]
     Dosage: DOSE: UNK
     Dates: start: 20040101
  7. CELEBREX [Suspect]
     Dosage: DOSE: UNK
  8. UNKNOWN DRUG [Concomitant]

REACTIONS (10)
  - BLOOD GLUCOSE INCREASED [None]
  - CARDIAC DISORDER [None]
  - CARDIAC FAILURE CONGESTIVE [None]
  - DIALYSIS [None]
  - FOAMING AT MOUTH [None]
  - HYPOGLYCAEMIC COMA [None]
  - HYPOGLYCAEMIC SEIZURE [None]
  - RENAL DISORDER [None]
  - RENAL FAILURE [None]
  - WEIGHT DECREASED [None]
